FAERS Safety Report 16085110 (Version 1)
Quarter: 2019Q2

REPORT INFORMATION
  Report Type: Spontaneous
  Country: US (occurrence: US)
  Receive Date: 20190318
  Receipt Date: 20190318
  Transmission Date: 20190711
  Serious: Yes (Other)
  Sender: FDA-Public Use
  Company Number: None

PATIENT
  Age: 37 Year
  Sex: Female
  Weight: 51.3 kg

DRUGS (5)
  1. XULANE [Suspect]
     Active Substance: ETHINYL ESTRADIOL\NORELGESTROMIN
     Indication: CONTRACEPTION
     Dosage: ?          QUANTITY:1 PATCH(ES);OTHER FREQUENCY:REPLACE WEEKLY;?
     Route: 062
     Dates: start: 20190304, end: 20190309
  2. MULTIVITAMIN [Concomitant]
     Active Substance: VITAMINS
  3. PROBIOTIC [Concomitant]
     Active Substance: PROBIOTICS NOS
  4. DIFLUCAN [Concomitant]
     Active Substance: FLUCONAZOLE
  5. SPIRONOLACTONE. [Concomitant]
     Active Substance: SPIRONOLACTONE

REACTIONS (4)
  - Dermatitis contact [None]
  - Alopecia [None]
  - Hyperaesthesia teeth [None]
  - Application site pruritus [None]

NARRATIVE: CASE EVENT DATE: 20190309
